FAERS Safety Report 5035612-8 (Version None)
Quarter: 2006Q2

REPORT INFORMATION
  Report Type: 
  Country: None (occurrence: None)
  Receive Date: 20060627
  Receipt Date: 20060623
  Transmission Date: 20061013
  Serious: Yes (Other)
  Sender: FDA-Public Use
  Company Number: US-GLAXOSMITHKLINE-A0610169A

PATIENT
  Age: 79 Year
  Sex: Female

DRUGS (3)
  1. FLONASE [Suspect]
     Indication: INCREASED UPPER AIRWAY SECRETION
     Dosage: 2SPR PER DAY
     Route: 045
  2. ATENOLOL [Concomitant]
  3. LIPITOR [Concomitant]

REACTIONS (2)
  - DRY MOUTH [None]
  - PHARYNGEAL HAEMORRHAGE [None]
